FAERS Safety Report 8169782-X (Version None)
Quarter: 2012Q1

REPORT INFORMATION
  Report Type: 
  Country: None (occurrence: None)
  Receive Date: 20120228
  Receipt Date: 20120217
  Transmission Date: 20120608
  Serious: Yes (Disabling, Other)
  Sender: FDA-Public Use
  Company Number: BR-BRISTOL-MYERS SQUIBB COMPANY-16412207

PATIENT
  Age: 88 Year
  Sex: Male
  Weight: 60 kg

DRUGS (7)
  1. AMOXICILLIN AND CLAVULANATE POTASSIUM [Concomitant]
     Indication: LUNG INFECTION
     Dosage: CLAVULIN BD 1DF=850/125MG TABS 1 TAB AT NYT
     Route: 048
     Dates: start: 20120205
  2. AMOXICILLIN AND CLAVULANATE POTASSIUM [Concomitant]
     Indication: PYREXIA
     Dosage: CLAVULIN BD 1DF=850/125MG TABS 1 TAB AT NYT
     Route: 048
     Dates: start: 20120205
  3. AMIODARONE HYDROCHLORIDE [Suspect]
  4. TAMIRAM [Concomitant]
     Indication: LUNG INFECTION
     Dosage: 1DF=1 TAB
     Route: 048
     Dates: start: 20120215
  5. TAMIRAM [Concomitant]
     Indication: PYREXIA
     Dosage: 1DF=1 TAB
     Route: 048
     Dates: start: 20120215
  6. IRBESARTAN + HYDROCHLOROTHIAZIDE [Suspect]
     Indication: ARRHYTHMIA
     Dosage: 1DF=300/12.5MG TABS START:8 YEARS AGO
     Route: 048
  7. IRBESARTAN + HYDROCHLOROTHIAZIDE [Suspect]
     Indication: HYPERTENSION
     Dosage: 1DF=300/12.5MG TABS START:8 YEARS AGO
     Route: 048

REACTIONS (9)
  - INFARCTION [None]
  - HEMIPLEGIA [None]
  - PYREXIA [None]
  - APHONIA [None]
  - BLINDNESS [None]
  - HYPERTENSION [None]
  - DRUG DOSE OMISSION [None]
  - CEREBROVASCULAR ACCIDENT [None]
  - HYPOTENSION [None]
